FAERS Safety Report 8124474-8 (Version None)
Quarter: 2012Q1

REPORT INFORMATION
  Report Type: 
  Country: None (occurrence: None)
  Receive Date: 20120209
  Receipt Date: 20120201
  Transmission Date: 20120608
  Serious: Yes (Hospitalization)
  Sender: FDA-Public Use
  Company Number: CA-JNJFOC-20120202746

PATIENT
  Sex: Female
  Weight: 45.4 kg

DRUGS (7)
  1. ACETAMINOPHEN [Concomitant]
     Dosage: AS NEEDED
     Route: 065
  2. PREDNISONE TAB [Concomitant]
     Route: 048
  3. PREDNISONE TAB [Concomitant]
     Route: 048
  4. PANTOPRAZOLE [Concomitant]
     Route: 065
  5. BIRTH CONTROL PILL [Concomitant]
     Route: 065
  6. REMICADE [Suspect]
     Dosage: 16TH INFUSION
     Route: 042
     Dates: start: 20111214
  7. REMICADE [Suspect]
     Indication: CROHN'S DISEASE
     Route: 042
     Dates: start: 20100218

REACTIONS (2)
  - ABDOMINAL PAIN UPPER [None]
  - DIARRHOEA [None]
